FAERS Safety Report 8192908-9 (Version None)
Quarter: 2012Q1

REPORT INFORMATION
  Report Type: 
  Country: None (occurrence: None)
  Receive Date: 20120308
  Receipt Date: 20120228
  Transmission Date: 20120608
  Serious: Yes (Other)
  Sender: FDA-Public Use
  Company Number: US-JNJFOC-20120203275

PATIENT
  Sex: Female
  Weight: 62.14 kg

DRUGS (1)
  1. XARELTO [Suspect]
     Indication: ORTHOPEDIC PROCEDURE
     Route: 048
     Dates: start: 20111223

REACTIONS (1)
  - DEEP VEIN THROMBOSIS [None]
